FAERS Safety Report 16431584 (Version 1)
Quarter: 2019Q2

REPORT INFORMATION
  Report Type: Spontaneous
  Country: FR (occurrence: FR)
  Receive Date: 20190614
  Receipt Date: 20190614
  Transmission Date: 20190711
  Serious: Yes (Hospitalization)
  Sender: FDA-Public Use
  Company Number: FR-PFIZER INC-2019248524

PATIENT
  Age: 16 Year
  Sex: Female

DRUGS (9)
  1. SUBUTEX [Suspect]
     Active Substance: BUPRENORPHINE HYDROCHLORIDE
     Dosage: UNK
     Route: 048
     Dates: end: 1993
  2. XANAX [Suspect]
     Active Substance: ALPRAZOLAM
     Indication: ANXIETY
     Dosage: 1 TO 2 TABLETS OF 0.5MG, DAILY
     Route: 048
  3. AMPHETAMINE [Suspect]
     Active Substance: AMPHETAMINE
     Dosage: UNK
     Route: 048
  4. RISPERDAL [Concomitant]
     Active Substance: RISPERIDONE
     Dosage: UNK UNK, 2X/DAY(1-0-1)
  5. AERIUS (DESLORATADINE) [Concomitant]
     Active Substance: DESLORATADINE
     Dosage: UNK UNK, 1X/DAY (0-0-1)
  6. CANNABIS [Suspect]
     Active Substance: CANNABIS SATIVA SUBSP. INDICA TOP
     Dosage: UNK (6 JOINTS/DAY)
     Route: 055
     Dates: start: 1991
  7. LSD [Suspect]
     Active Substance: LYSERGIDE
     Dosage: UNK
     Route: 048
  8. LEELOO [Concomitant]
     Active Substance: ETHINYL ESTRADIOL\LEVONORGESTREL
     Dosage: UNK UNK, 1X/DAY
  9. XANAX [Suspect]
     Active Substance: ALPRAZOLAM
     Dosage: 4 DF, 1X/DAY
     Route: 048
     Dates: start: 2003

REACTIONS (7)
  - Drug abuse [Not Recovered/Not Resolved]
  - Hypoalbuminaemia [Recovering/Resolving]
  - Product use issue [Unknown]
  - Macrocytosis [Recovering/Resolving]
  - Drug dependence [Not Recovered/Not Resolved]
  - Extrasystoles [Recovering/Resolving]
  - Off label use [Unknown]

NARRATIVE: CASE EVENT DATE: 20190429
